FAERS Safety Report 5748897-7 (Version None)
Quarter: 2008Q2

REPORT INFORMATION
  Report Type: 
  Country: None (occurrence: None)
  Receive Date: 20080522
  Receipt Date: 20080514
  Transmission Date: 20081010
  Serious: Yes (Hospitalization, Other)
  Sender: FDA-Public Use
  Company Number: E2020-02406-SPO-JP

PATIENT
  Age: 74 Year
  Sex: Male
  Weight: 51 kg

DRUGS (11)
  1. ARICEPT [Suspect]
     Indication: DEMENTIA ALZHEIMER'S TYPE
     Dosage: 2.5 MG, 1 IN 1 D, ORAL
     Route: 048
     Dates: start: 20080212, end: 20080221
  2. MAGMITT (MAGNESIUM OXIDE) [Suspect]
     Indication: CONSTIPATION
     Dosage: CONSTIPATION
     Dates: start: 20071201, end: 20080221
  3. ASPIRIN [Concomitant]
  4. ALLOPURINOL [Concomitant]
  5. KNORAMIN (NIFEDIPINE) [Concomitant]
  6. UBRETID (DISTIGMINE BROMIDE) [Concomitant]
  7. MARILEON (NICERGOLINE) [Concomitant]
  8. URSO 250 [Concomitant]
  9. MICARDIS [Concomitant]
  10. ADALAT [Concomitant]
  11. SERMION (NICERGOLINE) [Concomitant]

REACTIONS (21)
  - ABNORMAL BEHAVIOUR [None]
  - ALTERED STATE OF CONSCIOUSNESS [None]
  - AMNESIA [None]
  - CEREBRAL ATROPHY [None]
  - CEREBRAL ISCHAEMIA [None]
  - COGNITIVE DISORDER [None]
  - COMPRESSION FRACTURE [None]
  - CONSTIPATION [None]
  - DECREASED APPETITE [None]
  - DIZZINESS [None]
  - DRUG TOXICITY [None]
  - ELECTROLYTE IMBALANCE [None]
  - FALL [None]
  - HAEMODIALYSIS [None]
  - HALLUCINATION, VISUAL [None]
  - HYPERMAGNESAEMIA [None]
  - HYPEROSMOLAR STATE [None]
  - LEFT VENTRICULAR HYPERTROPHY [None]
  - ORAL INTAKE REDUCED [None]
  - RENAL FAILURE ACUTE [None]
  - RIGHT VENTRICLE OUTFLOW TRACT OBSTRUCTION [None]
